FAERS Safety Report 25593593 (Version 1)
Quarter: 2025Q3

REPORT INFORMATION
  Report Type: Report from Study
  Country: ZA (occurrence: ZA)
  Receive Date: 20250722
  Receipt Date: 20250722
  Transmission Date: 20251020
  Serious: Yes (Hospitalization)
  Sender: ALEXION PHARMACEUTICALS
  Company Number: ZA-AstraZeneca-CH-00911695A

PATIENT
  Age: 60 Year
  Sex: Female

DRUGS (8)
  1. BUDESONIDE\FORMOTEROL [Suspect]
     Active Substance: BUDESONIDE\FORMOTEROL
     Indication: Chest discomfort
  2. Lipogen [Concomitant]
     Indication: Blood cholesterol abnormal
  3. INDAPAMIDE [Concomitant]
     Active Substance: INDAPAMIDE
     Indication: Hypertension
  4. MONTELUKAST SODIUM [Concomitant]
     Active Substance: MONTELUKAST SODIUM
     Indication: Asthma
  5. Stopayne [Concomitant]
     Indication: Pain
  6. PREDNISONE [Concomitant]
     Active Substance: PREDNISONE
  7. CLOBETASOL [Concomitant]
     Active Substance: CLOBETASOL
  8. Flustat [Concomitant]

REACTIONS (2)
  - Diabetes mellitus [Unknown]
  - Stress [Unknown]
